FAERS Safety Report 8762800 (Version 5)
Quarter: 2015Q2

REPORT INFORMATION
  Report Type: Report from Study
  Country: JP (occurrence: JP)
  Receive Date: 20120829
  Receipt Date: 20150416
  Transmission Date: 20150821
  Serious: Yes (Death)
  Sender: FDA-Public Use
  Company Number: JP-PFIZER INC-2012209602

PATIENT
  Age: 82 Year
  Sex: Female
  Weight: 46.8 kg

DRUGS (3)
  1. LAXOBERON [Concomitant]
     Active Substance: SODIUM PICOSULFATE
     Dosage: 10 DROPS, AS NEEDED
     Route: 048
     Dates: start: 20120822, end: 20120831
  2. GLYCERIN. [Concomitant]
     Active Substance: GLYCERIN
     Dosage: 1 DF, SINGLE
     Route: 054
     Dates: start: 20120822, end: 20120822
  3. XALKORI [Suspect]
     Active Substance: CRIZOTINIB
     Indication: NON-SMALL CELL LUNG CANCER
     Dosage: 250 MG, 2X/DAY
     Route: 048
     Dates: start: 20120810, end: 20120823

REACTIONS (1)
  - Lung disorder [Fatal]

NARRATIVE: CASE EVENT DATE: 20120823
